FAERS Safety Report 19110583 (Version 1)
Quarter: 2021Q2

REPORT INFORMATION
  Report Type: Report from Study
  Country: None (occurrence: NL)
  Receive Date: 20210409
  Receipt Date: 20210409
  Transmission Date: 20210717
  Serious: Yes (Other)
  Sender: FDA-Public Use
  Company Number: NL-ABBVIE-21P-114-3848830-00

PATIENT
  Age: 87 Year
  Sex: Male

DRUGS (3)
  1. LEUPRORELIN [Suspect]
     Active Substance: LEUPROLIDE ACETATE
     Dosage: 45 MILLIGRAM, Q6MONTHS
     Route: 058
     Dates: start: 20191022
  2. LEUPRORELIN [Suspect]
     Active Substance: LEUPROLIDE ACETATE
     Indication: PRODUCT USED FOR UNKNOWN INDICATION
     Dosage: 45 MILLIGRAM, Q6MONTHS
     Route: 058
     Dates: start: 20170425
  3. LEUPRORELIN [Suspect]
     Active Substance: LEUPROLIDE ACETATE
     Dosage: 45 MILLIGRAM, Q6MONTHS
     Route: 058
     Dates: start: 20190423, end: 2019

REACTIONS (1)
  - Terminal state [Unknown]
